FAERS Safety Report 10947629 (Version 1)
Quarter: 2015Q1

REPORT INFORMATION
  Report Type: Spontaneous
  Country: GB (occurrence: GB)
  Receive Date: 20150323
  Receipt Date: 20150323
  Transmission Date: 20150721
  Serious: Yes (Other)
  Sender: FDA-Public Use
  Company Number: GB-MYLANLABS-2015M1009282

PATIENT

DRUGS (1)
  1. KETAMINE [Suspect]
     Active Substance: KETAMINE
     Route: 065

REACTIONS (6)
  - Sepsis [Unknown]
  - Ureteric obstruction [Unknown]
  - Cystitis ulcerative [Unknown]
  - Drug abuse [Unknown]
  - Acute kidney injury [Recovered/Resolved]
  - Pyonephrosis [Unknown]
